FAERS Safety Report 7040839-X (Version None)
Quarter: 2010Q3

REPORT INFORMATION
  Report Type: 
  Country: None (occurrence: None)
  Receive Date: 20100929
  Receipt Date: 20100629
  Transmission Date: 20110219
  Serious: No
  Sender: FDA-Public Use
  Company Number: US-WYE-H15295510

PATIENT
  Age: 39 Year
  Sex: Female
  Weight: 61.29 kg

DRUGS (1)
  1. PRISTIQ [Suspect]
     Indication: MAJOR DEPRESSION
     Dosage: 50 MG 1X PER 1 DAY, ORAL
     Route: 048
     Dates: start: 20090101, end: 20100101

REACTIONS (5)
  - BRUXISM [None]
  - DRUG EFFECT DECREASED [None]
  - HYPOAESTHESIA [None]
  - NIGHTMARE [None]
  - WEIGHT INCREASED [None]
